FAERS Safety Report 5622039-0 (Version None)
Quarter: 2008Q1

REPORT INFORMATION
  Report Type: 
  Country: None (occurrence: None)
  Receive Date: 20080211
  Receipt Date: 20080130
  Transmission Date: 20080703
  Serious: Yes (Hospitalization)
  Sender: FDA-Public Use
  Company Number: US-ROCHE-357633

PATIENT
  Age: 57 Year
  Sex: Female

DRUGS (12)
  1. FUZEON [Suspect]
     Route: 058
     Dates: start: 20031001
  2. CRIXIVAN [Concomitant]
     Indication: DRUG USE FOR UNKNOWN INDICATION
     Route: 065
     Dates: end: 20040119
  3. EPIVIR [Concomitant]
  4. ACYCLOVIR [Concomitant]
  5. VIREAD [Concomitant]
  6. RENAL CAPS [Concomitant]
  7. BICITRA [Concomitant]
  8. NIASPAN [Concomitant]
  9. PRENATAL VITAMINS [Concomitant]
  10. NEURONTIN [Concomitant]
  11. ASPIRIN [Concomitant]
     Dosage: DRUG REPORTED AS BABY ASPIRIN
  12. HEPSERA [Concomitant]

REACTIONS (5)
  - GLUCOSE URINE PRESENT [None]
  - LIVER DISORDER [None]
  - NO ADVERSE EVENT [None]
  - RENAL DISORDER [None]
  - WRONG TECHNIQUE IN DRUG USAGE PROCESS [None]
